FAERS Safety Report 9832083 (Version 3)
Quarter: 2014Q2

REPORT INFORMATION
  Report Type: Report from Study
  Country: DE (occurrence: DE)
  Receive Date: 20140121
  Receipt Date: 20140627
  Transmission Date: 20141212
  Serious: Yes (Hospitalization, Other)
  Sender: FDA-Public Use
  Company Number: PHHY2014DE005257

PATIENT
  Age: 52 Year
  Sex: Female
  Weight: 65 kg

DRUGS (4)
  1. AMN107 [Suspect]
     Indication: CHRONIC MYELOID LEUKAEMIA
     Dosage: 800 MG, PER DAY
     Route: 048
     Dates: start: 20120127, end: 20121213
  2. AMN107 [Suspect]
     Dosage: 600 MG, PER DAY
     Dates: start: 20121214, end: 20140526
  3. CIPROFLOXACIN [Concomitant]
     Dates: start: 20120309, end: 20120313
  4. LIMPTAR [Concomitant]
     Dates: start: 20130529

REACTIONS (1)
  - Carotid artery stenosis [Recovered/Resolved with Sequelae]
